FAERS Safety Report 19134566 (Version 1)
Quarter: 2021Q2

REPORT INFORMATION
  Report Type: Spontaneous
  Country: US (occurrence: US)
  Receive Date: 20210414
  Receipt Date: 20210414
  Transmission Date: 20210717
  Serious: No
  Sender: FDA-Public Use
  Company Number: None

PATIENT
  Age: 7 Year
  Sex: Male
  Weight: 30.6 kg

DRUGS (2)
  1. GUANFACINE  EXTENDED?RELEASE TABLETS 2MG [Suspect]
     Active Substance: GUANFACINE
     Indication: ATTENTION DEFICIT HYPERACTIVITY DISORDER
     Dosage: ?          QUANTITY:1 TABLET(S);?
     Route: 048
     Dates: start: 20210323, end: 20210413
  2. METHYLPHENIDATE. [Concomitant]
     Active Substance: METHYLPHENIDATE

REACTIONS (7)
  - Product contamination [None]
  - Nightmare [None]
  - Lethargy [None]
  - Somnolence [None]
  - Headache [None]
  - Dizziness [None]
  - Sleep disorder [None]

NARRATIVE: CASE EVENT DATE: 20210414
